FAERS Safety Report 8779535 (Version 1)
Quarter: 2012Q4

REPORT INFORMATION
  Report Type: 
  Country: CA (occurrence: CA)
  Receive Date: 20120907
  Receipt Date: 20120907
  Transmission Date: 20130627
  Serious: Yes (Other)
  Sender: FDA-Public Use
  Company Number: CA-PFIZER INC-2012216283

PATIENT
  Sex: Female

DRUGS (1)
  1. DALACIN [Suspect]
     Dosage: 150 mg, UNK

REACTIONS (3)
  - Pruritus generalised [Unknown]
  - Dermatitis [Unknown]
  - Dysphonia [Unknown]
